FAERS Safety Report 9551813 (Version 1)
Quarter: 2013Q3

REPORT INFORMATION
  Report Type: Spontaneous
  Country: US (occurrence: None)
  Receive Date: 20130724
  Receipt Date: 20130724
  Transmission Date: 20140515
  Serious: Yes (Other)
  Sender: FDA-Public Use
  Company Number: PHEH2013US000758

PATIENT
  Age: 48 Year
  Sex: Male

DRUGS (2)
  1. DIOVAN HCT(VALSARTAN, HYDROCHLOROTHIAZIDE) UNKNOWN, 160/25MG [Suspect]
     Dosage: 1 DF, QD (80 MG VALS AND 12.5 HCT)
     Route: 048
  2. BABY ASPIRIN (ACETYLSALILIC ACID) [Concomitant]

REACTIONS (1)
  - Renal impairment [None]
